FAERS Safety Report 9605295 (Version 5)
Quarter: 2014Q2

REPORT INFORMATION
  Report Type: Report from Study
  Country: NL (occurrence: NL)
  Receive Date: 20131008
  Receipt Date: 20140509
  Transmission Date: 20141212
  Serious: Yes (Hospitalization, Other)
  Sender: FDA-Public Use
  Company Number: PHHO2013NL012566

PATIENT
  Sex: 0

DRUGS (8)
  1. BLINDED ACZ885 [Suspect]
     Indication: CARDIOVASCULAR EVENT PROPHYLAXIS
     Dosage: DOUBLE BLIND
     Route: 058
     Dates: start: 20120807
  2. BLINDED NO TREATMENT RECEIVED [Suspect]
     Indication: CARDIOVASCULAR EVENT PROPHYLAXIS
     Dosage: DOUBLE BLIND
     Route: 058
     Dates: start: 20120807
  3. BLINDED PLACEBO [Suspect]
     Indication: CARDIOVASCULAR EVENT PROPHYLAXIS
     Dosage: DOUBLE BLIND
     Route: 058
     Dates: start: 20120807
  4. FUROSEMIDE [Concomitant]
     Indication: CARDIAC FAILURE
     Dosage: 20 MG, UNK
     Dates: start: 20050623, end: 20130916
  5. ACENOCOUMAROL [Concomitant]
     Indication: ANEURYSM
     Dosage: 1 MG, UNK
     Dates: start: 20120405, end: 20130916
  6. BISOPROLOL [Concomitant]
     Indication: CORONARY ARTERY DISEASE
     Dosage: 25 MG, UNK
     Dates: start: 20050830, end: 20130916
  7. SIMVASTATIN [Concomitant]
     Indication: CORONARY ARTERY DISEASE
     Dosage: 40 MG, UNK
     Dates: start: 20050623, end: 20130916
  8. CANDESARTAN [Concomitant]
     Indication: CORONARY ARTERY DISEASE
     Dosage: 8 MG, UNK
     Dates: start: 20050830, end: 20130916

REACTIONS (3)
  - Diverticulitis [Recovering/Resolving]
  - Pseudomonas infection [Recovered/Resolved]
  - Wound infection [Not Recovered/Not Resolved]
